FAERS Safety Report 7771583-9 (Version None)
Quarter: 2011Q3

REPORT INFORMATION
  Report Type: 
  Country: None (occurrence: None)
  Receive Date: 20110922
  Receipt Date: 20101209
  Transmission Date: 20111222
  Serious: No
  Sender: FDA-Public Use
  Company Number: US-ASTRAZENECA-2010SE58469

PATIENT
  Age: 62 Year
  Sex: Female

DRUGS (8)
  1. SEROQUEL [Suspect]
     Route: 048
     Dates: start: 20101001
  2. SEROQUEL [Suspect]
     Indication: POST-TRAUMATIC STRESS DISORDER
     Route: 048
     Dates: start: 20090301, end: 20101001
  3. SEROQUEL [Suspect]
     Route: 048
     Dates: start: 20101001
  4. SEROQUEL [Suspect]
     Indication: ANXIETY
     Route: 048
     Dates: start: 20090301, end: 20101001
  5. SEROQUEL [Suspect]
     Route: 048
     Dates: start: 20101001
  6. SEROQUEL [Suspect]
     Route: 048
     Dates: start: 20090301, end: 20101001
  7. SEROQUEL [Suspect]
     Route: 048
     Dates: start: 20101001
  8. SEROQUEL [Suspect]
     Route: 048
     Dates: start: 20090301, end: 20101001

REACTIONS (4)
  - TREMOR [None]
  - PANIC ATTACK [None]
  - APHAGIA [None]
  - NAUSEA [None]
